FAERS Safety Report 24346185 (Version 1)
Quarter: 2024Q3

REPORT INFORMATION
  Report Type: Spontaneous
  Country: US (occurrence: US)
  Receive Date: 20240921
  Receipt Date: 20240921
  Transmission Date: 20241017
  Serious: No
  Sender: AUROBINDO
  Company Number: US-AUROBINDO-AUR-APL-2024-018664

PATIENT
  Age: 67 Year
  Sex: Female

DRUGS (1)
  1. ALENDRONATE SODIUM [Suspect]
     Active Substance: ALENDRONATE SODIUM
     Indication: Product used for unknown indication
     Dosage: 70 MILLIGRAM, EVERY WEEK
     Route: 048
     Dates: start: 202403

REACTIONS (4)
  - Eructation [Unknown]
  - Secretion discharge [Unknown]
  - Product blister packaging issue [Unknown]
  - Product packaging difficult to open [Unknown]
